FAERS Safety Report 22142513 (Version 2)
Quarter: 2024Q1

REPORT INFORMATION
  Report Type: Spontaneous
  Country: SE (occurrence: SE)
  Receive Date: 20230327
  Receipt Date: 20240109
  Transmission Date: 20240409
  Serious: Yes (Other)
  Sender: FDA-Public Use
  Company Number: None

PATIENT
  Age: 68 Year
  Sex: Female

DRUGS (2)
  1. ETANERCEPT [Suspect]
     Active Substance: ETANERCEPT
     Indication: Rheumatoid arthritis
     Dosage: BENEPALI 50 MG LIQUID FOR INJECTION, SOLUTION IN PRE-FILLED INJECTION PEN
     Route: 058
     Dates: start: 20200219, end: 20221229
  2. ETANERCEPT [Suspect]
     Active Substance: ETANERCEPT
     Dosage: SOLUTION FOR INJECTION, SOLUTION IN PRE-FILLED PEN
     Route: 058
     Dates: start: 20200219, end: 20221229

REACTIONS (2)
  - Polyneuropathy [Recovered/Resolved]
  - Product use issue [Unknown]

NARRATIVE: CASE EVENT DATE: 20221201
